FAERS Safety Report 23953826 (Version 1)
Quarter: 2024Q2

REPORT INFORMATION
  Report Type: Spontaneous
  Country: US (occurrence: US)
  Receive Date: 20240609
  Receipt Date: 20240609
  Transmission Date: 20240716
  Serious: Yes (Other)
  Sender: FDA-Public Use
  Company Number: US-E2BLSMVVAL-SPO/USA/24/0008090

PATIENT
  Age: 24 Year
  Sex: Male
  Weight: 155 kg

DRUGS (1)
  1. ZENATANE [Suspect]
     Active Substance: ISOTRETINOIN
     Indication: Acne
     Route: 065
     Dates: start: 20240402, end: 20240515

REACTIONS (3)
  - Seizure [Unknown]
  - Epistaxis [Unknown]
  - Lip dry [Unknown]

NARRATIVE: CASE EVENT DATE: 20240516
